FAERS Safety Report 23345615 (Version 2)
Quarter: 2024Q1

REPORT INFORMATION
  Report Type: Spontaneous
  Country: US (occurrence: US)
  Receive Date: 20231228
  Receipt Date: 20240109
  Transmission Date: 20240410
  Serious: Yes (Other)
  Sender: FDA-Public Use
  Company Number: US-AMIVAS INC.-20231200010

PATIENT

DRUGS (9)
  1. ARTESUNATE [Suspect]
     Active Substance: ARTESUNATE
     Indication: Malaria
     Dosage: 150 MILLIGRAM
     Route: 042
     Dates: start: 20231107, end: 20231114
  2. COARTEM [Concomitant]
     Active Substance: ARTEMETHER\LUMEFANTRINE
     Indication: Malaria
     Dosage: UNK
  3. ACETAMINOPHEN [Concomitant]
     Active Substance: ACETAMINOPHEN
     Dosage: 650 MILLIGRAM, Q4H PRN
     Route: 048
  4. CHLORHEXIDINE GLUCONATE [Concomitant]
     Active Substance: CHLORHEXIDINE GLUCONATE
     Dosage: 1 APPLICATION, QD
     Route: 061
  5. HEPARIN LOCK FLUSH [Concomitant]
     Active Substance: HEPARIN SODIUM
     Dosage: 100 UNITS, INTRACATHETER
  6. HEPARIN LOCK FLUSH [Concomitant]
     Active Substance: HEPARIN SODIUM
     Dosage: 100 UNITS, INTRACATHETER
  7. HYDROCORTISONE [Concomitant]
     Active Substance: HYDROCORTISONE
     Dosage: 1 APPLICATION, BID PRN
     Route: 061
  8. SODIUM CHLORIDE [Concomitant]
     Active Substance: SODIUM CHLORIDE
     Dosage: 0.5-50ML, PRN
     Route: 042
  9. SODIUM CHLORIDE [Concomitant]
     Active Substance: SODIUM CHLORIDE
     Dosage: 0-10ML/HR, CONTINUOUS PRN
     Route: 042

REACTIONS (1)
  - Drug resistance [Recovering/Resolving]
